FAERS Safety Report 6985508-7 (Version None)
Quarter: 2010Q3

REPORT INFORMATION
  Report Type: 
  Country: None (occurrence: None)
  Receive Date: 20100915
  Receipt Date: 20100908
  Transmission Date: 20110219
  Serious: Yes (Other)
  Sender: FDA-Public Use
  Company Number: B0674605A

PATIENT
  Sex: Female

DRUGS (2)
  1. AUGMENTIN '125' [Suspect]
     Indication: SINUSITIS
     Dosage: 2G PER DAY
     Route: 048
     Dates: start: 20100523, end: 20100526
  2. FLUIFORT [Suspect]
     Indication: SINUSITIS
     Dosage: 2.7G PER DAY
     Route: 048
     Dates: start: 20100523, end: 20100526

REACTIONS (2)
  - ERYTHEMA [None]
  - PRURITUS [None]
